FAERS Safety Report 7249313-9 (Version None)
Quarter: 2011Q1

REPORT INFORMATION
  Report Type: 
  Country: None (occurrence: None)
  Receive Date: 20110128
  Receipt Date: 20101214
  Transmission Date: 20110831
  Serious: Yes (Hospitalization)
  Sender: FDA-Public Use
  Company Number: US-BAYER-2010-004181

PATIENT
  Age: 72 Year
  Sex: Male

DRUGS (6)
  1. GEMCITABINE [Suspect]
     Indication: BILE DUCT CANCER
     Dosage: UNK
     Dates: start: 20100917, end: 20100924
  2. SORAFENIB (RAF KINASE INHIBITOR) [Suspect]
     Indication: HEPATIC NEOPLASM MALIGNANT
     Dosage: UNK
     Dates: end: 20101203
  3. CISPLATIN [Suspect]
     Indication: HEPATIC NEOPLASM MALIGNANT
     Dosage: UNK
     Dates: end: 20101203
  4. GEMCITABINE [Suspect]
     Indication: HEPATIC NEOPLASM MALIGNANT
     Dosage: UNK
     Dates: end: 20101203
  5. SORAFENIB (RAF KINASE INHIBITOR) [Suspect]
     Indication: BILE DUCT CANCER
     Dosage: UNK
     Dates: start: 20100917, end: 20100924
  6. CISPLATIN [Suspect]
     Indication: BILE DUCT CANCER
     Dosage: UNK
     Dates: start: 20100917, end: 20100924

REACTIONS (3)
  - DYSPNOEA [None]
  - RENAL FAILURE ACUTE [None]
  - TROPONIN I INCREASED [None]
